FAERS Safety Report 5860169-9 (Version None)
Quarter: 2008Q3

REPORT INFORMATION
  Report Type: 
  Country: None (occurrence: None)
  Receive Date: 20080827
  Receipt Date: 20080819
  Transmission Date: 20090109
  Serious: Yes (Hospitalization)
  Sender: FDA-Public Use
  Company Number: FR-ASTRAZENECA-2008CG01235

PATIENT
  Age: 976 Month
  Sex: Male

DRUGS (8)
  1. MOPRAL [Suspect]
     Indication: GASTRIC ULCER
     Route: 048
  2. URBANYL [Suspect]
     Indication: ANXIETY
     Route: 048
     Dates: start: 20080530, end: 20080623
  3. NOROXIN [Suspect]
     Indication: CYSTITIS
     Route: 048
     Dates: start: 20080528, end: 20080628
  4. ELISOR [Suspect]
     Indication: PROPHYLAXIS
     Route: 048
  5. CORDARONE [Suspect]
     Indication: ATRIAL FIBRILLATION
     Route: 048
  6. KEPPRA [Suspect]
     Indication: EPILEPSY
     Route: 048
     Dates: start: 20080530
  7. GLUCOPHAGE [Suspect]
     Indication: TYPE 2 DIABETES MELLITUS
     Route: 048
     Dates: end: 20080626
  8. ASPIRIN [Suspect]
     Indication: PROPHYLAXIS
     Route: 048

REACTIONS (2)
  - ABNORMAL BEHAVIOUR [None]
  - CONDITION AGGRAVATED [None]
